FAERS Safety Report 13794396 (Version 4)
Quarter: 2018Q1

REPORT INFORMATION
  Report Type: Spontaneous
  Country: US (occurrence: US)
  Receive Date: 20170726
  Receipt Date: 20180219
  Transmission Date: 20180508
  Serious: No
  Sender: FDA-Public Use
  Company Number: US-PFIZER INC-2017320122

PATIENT
  Age: 63 Year
  Sex: Female

DRUGS (2)
  1. IBRANCE [Suspect]
     Active Substance: PALBOCICLIB
     Dosage: 125 MG, UNK
  2. IBRANCE [Suspect]
     Active Substance: PALBOCICLIB
     Dosage: 100 MG, UNK

REACTIONS (3)
  - White blood cell count decreased [Unknown]
  - Neutrophil count decreased [Unknown]
  - Full blood count decreased [Unknown]
